FAERS Safety Report 4632161-3 (Version None)
Quarter: 2005Q2

REPORT INFORMATION
  Report Type: 
  Country: None (occurrence: None)
  Receive Date: 20050401
  Receipt Date: 20040512
  Transmission Date: 20051028
  Serious: Yes (Other)
  Sender: FDA-Public Use
  Company Number: 04P-163-0260704-00

PATIENT
  Age: 75 Year
  Sex: Male
  Weight: 68.4932 kg

DRUGS (8)
  1. DEPAKOTE [Suspect]
     Indication: AGGRESSION
     Dosage: 250MG, 2 IN 1 D
     Dates: end: 20040316
  2. MEMANTINE [Suspect]
     Indication: DEMENTIA ALZHEIMER'S TYPE
     Dosage: 10 MG, 2 IN 1 D; PER ORAL (SEE IMAGE)
     Route: 048
     Dates: start: 20040101, end: 20040101
  3. MEMANTINE [Suspect]
     Indication: DEMENTIA ALZHEIMER'S TYPE
     Dosage: 10 MG, 2 IN 1 D; PER ORAL (SEE IMAGE)
     Route: 048
     Dates: start: 20040101, end: 20040101
  4. MEMANTINE [Suspect]
     Indication: DEMENTIA ALZHEIMER'S TYPE
     Dosage: 10 MG, 2 IN 1 D; PER ORAL (SEE IMAGE)
     Route: 048
     Dates: start: 20040128, end: 20040101
  5. MEMANTINE [Suspect]
     Indication: DEMENTIA ALZHEIMER'S TYPE
     Dosage: 10 MG, 2 IN 1 D; PER ORAL (SEE IMAGE)
     Route: 048
     Dates: start: 20040101, end: 20040316
  6. TRAZODONE [Suspect]
     Indication: AGITATION
     Dosage: 150 MG, 1 IN 1 D;
     Dates: end: 20040316
  7. LORAZEPAM [Suspect]
     Indication: ANXIETY
     Dosage: 0.5 MG, 2 IN 1 D;
     Dates: end: 20040316
  8. DONEPEZIL HYDROCHLORIDE [Concomitant]

REACTIONS (1)
  - CONFUSIONAL STATE [None]
